FAERS Safety Report 18864167 (Version 1)
Quarter: 2021Q1

REPORT INFORMATION
  Report Type: Spontaneous
  Country: US (occurrence: US)
  Receive Date: 20210208
  Receipt Date: 20210208
  Transmission Date: 20210420
  Serious: Yes (Death, Hospitalization, Other)
  Sender: FDA-Public Use
  Company Number: US-ASTELLAS-2021US003974

PATIENT
  Age: 70 Year
  Sex: Male

DRUGS (5)
  1. MICAFUNGIN. [Interacting]
     Active Substance: MICAFUNGIN SODIUM
     Indication: ANTIFUNGAL PROPHYLAXIS
     Dosage: UNK UNK, UNKNOWN FREQ.
     Route: 065
  2. TACROLIMUS. [Suspect]
     Active Substance: TACROLIMUS
     Indication: LIVER TRANSPLANT
     Dosage: UNK UNK, UNKNOWN FREQ.
     Route: 065
  3. FLUCONAZOLE. [Concomitant]
     Active Substance: FLUCONAZOLE
     Indication: ANTIFUNGAL PROPHYLAXIS
     Dosage: UNK UNK, UNKNOWN FREQ.
     Route: 065
  4. MICAFUNGIN. [Interacting]
     Active Substance: MICAFUNGIN SODIUM
     Indication: GASTROINTESTINAL MUCORMYCOSIS
     Route: 042
  5. MYCOPHENOLATE [Concomitant]
     Active Substance: MYCOPHENOLIC ACID
     Indication: LIVER TRANSPLANT
     Dosage: UNK UNK, UNKNOWN FREQ.
     Route: 065

REACTIONS (14)
  - Gastrointestinal mucormycosis [Unknown]
  - Prostatic abscess [Unknown]
  - Product use in unapproved indication [Unknown]
  - Pneumonia bacterial [Unknown]
  - Infectious pleural effusion [Unknown]
  - Drug ineffective for unapproved indication [Unknown]
  - Fungal sepsis [Fatal]
  - Herpes simplex oesophagitis [Unknown]
  - Wound infection fungal [Unknown]
  - Pneumonia klebsiella [Unknown]
  - Pneumonia pseudomonal [Unknown]
  - Postoperative wound infection [Unknown]
  - Streptococcal bacteraemia [Unknown]
  - Diverticulum intestinal [Unknown]
